FAERS Safety Report 4338871-X (Version None)
Quarter: 2004Q2

REPORT INFORMATION
  Report Type: 
  Country: None (occurrence: None)
  Receive Date: 20040409
  Receipt Date: 20040329
  Transmission Date: 20050107
  Serious: Yes (Hospitalization)
  Sender: FDA-Public Use
  Company Number: A044-002-004899

PATIENT
  Age: 76 Year
  Sex: Female

DRUGS (1)
  1. ARICEPT [Suspect]
     Indication: DEMENTIA
     Dosage: 5 MG, 1 IN 1 D, ORAL
     Route: 048
     Dates: start: 20040223

REACTIONS (4)
  - AGITATION [None]
  - CONFUSIONAL STATE [None]
  - PARANOIA [None]
  - PSYCHOTIC DISORDER [None]
